FAERS Safety Report 13897796 (Version 3)
Quarter: 2017Q4

REPORT INFORMATION
  Report Type: Spontaneous
  Country: US (occurrence: US)
  Receive Date: 20170823
  Receipt Date: 20171026
  Transmission Date: 20180320
  Serious: Yes (Hospitalization, Other)
  Sender: FDA-Public Use
  Company Number: US-IMPAX LABORATORIES, INC-2017-IPXL-02452

PATIENT
  Age: 72 Year
  Sex: Female
  Weight: 61 kg

DRUGS (4)
  1. COLESTIPOL HYDROCHLORIDE. [Suspect]
     Active Substance: COLESTIPOL HYDROCHLORIDE
     Dosage: 1 GRAM, EIGHT TABLETS ONCE DAILY
     Route: 048
     Dates: start: 2017
  2. COLESTIPOL HYDROCHLORIDE. [Suspect]
     Active Substance: COLESTIPOL HYDROCHLORIDE
     Dosage: 1 GRAM, EIGHT TABLETS TWICE DAILY
     Route: 048
     Dates: start: 2017
  3. COLESTIPOL HYDROCHLORIDE. [Suspect]
     Active Substance: COLESTIPOL HYDROCHLORIDE
     Indication: BLOOD CHOLESTEROL INCREASED
     Dosage: 1 GRAM, EIGHT TABLETS TWICE DAILY
     Route: 048
     Dates: start: 20090526
  4. CALCIUM [Concomitant]
     Active Substance: CALCIUM
     Indication: PRODUCT USED FOR UNKNOWN INDICATION
     Dosage: UNK
     Route: 065

REACTIONS (4)
  - Foreign body in respiratory tract [Recovered/Resolved]
  - Product physical issue [Unknown]
  - Myocardial infarction [Recovered/Resolved]
  - Vitamin D deficiency [Not Recovered/Not Resolved]

NARRATIVE: CASE EVENT DATE: 201008
